FAERS Safety Report 5623558-3 (Version None)
Quarter: 2008Q1

REPORT INFORMATION
  Report Type: 
  Country: None (occurrence: None)
  Receive Date: 20080129
  Receipt Date: 20071107
  Transmission Date: 20080703
  Serious: Yes (Other)
  Sender: FDA-Public Use
  Company Number: WAES 0711USA02003

PATIENT
  Age: 83 Year
  Sex: Female

DRUGS (1)
  1. INVANZ [Suspect]
     Indication: NOCARDIOSIS
     Dosage: 1 GM/DAILY/IV ; 2 GM/DAILY/IV
     Route: 042

REACTIONS (2)
  - CONVULSION [None]
  - OVERDOSE [None]
